FAERS Safety Report 9722829 (Version 1)
Quarter: 2013Q4

REPORT INFORMATION
  Report Type: Spontaneous
  Country: US (occurrence: None)
  Receive Date: 20131127
  Receipt Date: 20131127
  Transmission Date: 20140711
  Serious: No
  Sender: FDA-Public Use
  Company Number: None

PATIENT
  Age: 45 Year
  Sex: Female
  Weight: 54.5 kg

DRUGS (2)
  1. TAXOL [Suspect]
     Dates: start: 20090526, end: 20090817
  2. HERCEPTIN [Suspect]
     Dates: start: 20100524, end: 20100524

REACTIONS (1)
  - Rectal adenocarcinoma [None]
